FAERS Safety Report 6861940-7 (Version None)
Quarter: 2010Q3

REPORT INFORMATION
  Report Type: 
  Country: None (occurrence: None)
  Receive Date: 20100720
  Receipt Date: 20100720
  Transmission Date: 20110219
  Serious: Yes (Other)
  Sender: FDA-Public Use
  Company Number: None

PATIENT
  Age: 15 Year
  Sex: Female
  Weight: 72.5755 kg

DRUGS (1)
  1. RETIN-A [Suspect]
     Indication: ACNE
     Dosage: APPLY TO FACE TOP
     Route: 061
     Dates: start: 20100717, end: 20100717

REACTIONS (3)
  - RASH [None]
  - SWELLING FACE [None]
  - URTICARIA [None]
